FAERS Safety Report 21036057 (Version 1)
Quarter: 2022Q3

REPORT INFORMATION
  Report Type: Spontaneous
  Country: US (occurrence: US)
  Receive Date: 20220701
  Receipt Date: 20220701
  Transmission Date: 20221027
  Serious: No
  Sender: FDA-Public Use
  Company Number: US-KRAMERLABS-2022-US-008863

PATIENT
  Age: 66 Year
  Sex: Male
  Weight: 88.45 kg

DRUGS (1)
  1. NIZORAL A-D [Suspect]
     Active Substance: KETOCONAZOLE
     Indication: Dandruff
     Dosage: USED EVERY DAY, EVERY OTHER DAY OR EVERY THIRD DAY
     Route: 061
     Dates: start: 2002

REACTIONS (8)
  - Alopecia [Not Recovered/Not Resolved]
  - Skin lesion [Not Recovered/Not Resolved]
  - Scab [Not Recovered/Not Resolved]
  - Skin haemorrhage [Not Recovered/Not Resolved]
  - Intentional product misuse [Unknown]
  - Product use in unapproved indication [Unknown]
  - Inappropriate schedule of product administration [Unknown]
  - Off label use [Unknown]

NARRATIVE: CASE EVENT DATE: 20020101
